FAERS Safety Report 8373334-6 (Version None)
Quarter: 2012Q2

REPORT INFORMATION
  Report Type: 
  Country: None (occurrence: None)
  Receive Date: 20120521
  Receipt Date: 20120516
  Transmission Date: 20120825
  Serious: Yes (Life-Threatening, Hospitalization, Other)
  Sender: FDA-Public Use
  Company Number: JP-PFIZER INC-2012026863

PATIENT
  Age: 40 Year
  Sex: Male
  Weight: 81 kg

DRUGS (6)
  1. SLOWHEIM [Suspect]
     Indication: SUICIDE ATTEMPT
     Dosage: 75 MG, SINGLE
     Route: 048
     Dates: start: 20091211, end: 20091211
  2. ROHYPNOL [Suspect]
     Indication: SUICIDE ATTEMPT
     Dosage: 46 MG, SINGLE
     Route: 048
     Dates: start: 20091211, end: 20091211
  3. HALCION [Suspect]
     Indication: SUICIDE ATTEMPT
     Dosage: 2.5 MG, SINGLE
     Route: 048
     Dates: start: 20091211, end: 20091211
  4. LORAZEPAM [Suspect]
     Indication: SUICIDE ATTEMPT
     Dosage: 20 MG, SINGLE
     Route: 048
     Dates: start: 20091211, end: 20091211
  5. PHENOBARBITAL TAB [Suspect]
     Indication: SUICIDE ATTEMPT
     Dosage: 600 MG, SINGLE
     Route: 048
     Dates: start: 20091211, end: 20091211
  6. TIZANIDINE HYDROCHLORIDE [Suspect]
     Indication: SUICIDE ATTEMPT
     Dosage: 20 MG, SINGLE
     Route: 048
     Dates: start: 20091211, end: 20091211

REACTIONS (7)
  - TOXICITY TO VARIOUS AGENTS [None]
  - DEHYDRATION [None]
  - RENAL FAILURE ACUTE [None]
  - HYPOTHERMIA [None]
  - SUICIDE ATTEMPT [None]
  - LOSS OF CONSCIOUSNESS [None]
  - RHABDOMYOLYSIS [None]
